FAERS Safety Report 6649317-0 (Version None)
Quarter: 2010Q1

REPORT INFORMATION
  Report Type: 
  Country: None (occurrence: None)
  Receive Date: 20100324
  Receipt Date: 20100315
  Transmission Date: 20100710
  Serious: Yes (Hospitalization, Disabling, Other)
  Sender: FDA-Public Use
  Company Number: NZ-WYE-G05023609

PATIENT
  Sex: Female

DRUGS (7)
  1. EFFEXOR XR [Suspect]
     Indication: POST-TRAUMATIC STRESS DISORDER
     Dosage: STARTED 75MG DAILY, THEN 150MG DAILY THEN 75MG X 3 EACH NIGHT SINCE 2005
     Route: 048
  2. EFFEXOR XR [Suspect]
     Indication: PANIC ATTACK
     Dosage: WEANING OFF EFEXOR XR
     Route: 048
  3. EFFEXOR XR [Suspect]
     Dosage: 300MG
  4. EFFEXOR XR [Suspect]
  5. EFFEXOR XR [Suspect]
     Dosage: 37.5MG DAILY
  6. CLONAZEPAM [Concomitant]
  7. AMITRIP [Suspect]

REACTIONS (66)
  - ACCOMMODATION DISORDER [None]
  - ACTIVITIES OF DAILY LIVING IMPAIRED [None]
  - AFFECT LABILITY [None]
  - AGITATION [None]
  - AKATHISIA [None]
  - ANGER [None]
  - ANXIETY [None]
  - APHASIA [None]
  - ARRHYTHMIA [None]
  - ASTHENIA [None]
  - BALANCE DISORDER [None]
  - BLOOD PRESSURE INCREASED [None]
  - CONDITION AGGRAVATED [None]
  - CONDUCTION DISORDER [None]
  - CONFUSIONAL STATE [None]
  - CRYING [None]
  - DEPRESSION [None]
  - DIARRHOEA [None]
  - DISABILITY [None]
  - DISSOCIATIVE DISORDER [None]
  - DISTURBANCE IN SOCIAL BEHAVIOUR [None]
  - DRUG EFFECT DECREASED [None]
  - DRUG WITHDRAWAL SYNDROME [None]
  - DYSARTHRIA [None]
  - DYSTONIA [None]
  - ECONOMIC PROBLEM [None]
  - EMOTIONAL DISTRESS [None]
  - FEELING ABNORMAL [None]
  - FEELING GUILTY [None]
  - FOOT DEFORMITY [None]
  - HAEMORRHAGE [None]
  - HAND DEFORMITY [None]
  - HEAD TITUBATION [None]
  - HEADACHE [None]
  - HEART RATE INCREASED [None]
  - HOMELESS [None]
  - HYPERTONIA [None]
  - HYPOMANIA [None]
  - ILLUSION [None]
  - INSOMNIA [None]
  - IRRITABILITY [None]
  - LARYNGOSPASM [None]
  - LOSS OF EMPLOYMENT [None]
  - MANIA [None]
  - MEMORY IMPAIRMENT [None]
  - MENTAL DISORDER [None]
  - MOBILITY DECREASED [None]
  - NEUROMYOPATHY [None]
  - OBESITY [None]
  - PAIN [None]
  - PANIC ATTACK [None]
  - PARAESTHESIA [None]
  - PARKINSONISM [None]
  - PLANTAR FASCIITIS [None]
  - RESTLESS LEGS SYNDROME [None]
  - RESTLESSNESS [None]
  - SEDATION [None]
  - SELF ESTEEM DECREASED [None]
  - SEROTONIN SYNDROME [None]
  - SLEEP DISORDER [None]
  - SOMATOFORM DISORDER [None]
  - SUICIDAL IDEATION [None]
  - SUSPICIOUSNESS [None]
  - TONGUE PARALYSIS [None]
  - TOOTH ABSCESS [None]
  - TREMOR [None]
